FAERS Safety Report 12307949 (Version 6)
Quarter: 2016Q3

REPORT INFORMATION
  Report Type: Report from Study
  Country: US (occurrence: US)
  Receive Date: 20160426
  Receipt Date: 20160817
  Transmission Date: 20161109
  Serious: Yes (Hospitalization)
  Sender: FDA-Public Use
  Company Number: US-ACTELION-A-NJ2016-135148

PATIENT
  Age: 61 Year
  Sex: Female

DRUGS (1)
  1. VELETRI [Suspect]
     Active Substance: EPOPROSTENOL
     Indication: PULMONARY ARTERIAL HYPERTENSION
     Dosage: 59 NG/KG, PER MIN
     Route: 042
     Dates: start: 20140714

REACTIONS (19)
  - Muscle disorder [Unknown]
  - Transfusion [Unknown]
  - Diarrhoea [Unknown]
  - Chest pain [Unknown]
  - Renal disorder [Unknown]
  - Fluid retention [Unknown]
  - Vomiting [Unknown]
  - Cough [Unknown]
  - Dyspnoea [Unknown]
  - Platelet count decreased [Unknown]
  - Brain natriuretic peptide increased [Unknown]
  - Oedema peripheral [Unknown]
  - Headache [Unknown]
  - Respiratory syncytial virus infection [Unknown]
  - Ear congestion [Unknown]
  - Methaemoglobinaemia [Unknown]
  - Anaemia [Unknown]
  - Blood urine present [Unknown]
  - Asthenia [Unknown]
